FAERS Safety Report 18904279 (Version 3)
Quarter: 2021Q1

REPORT INFORMATION
  Report Type: Other
  Country: US (occurrence: US)
  Receive Date: 20210217
  Receipt Date: 20210325
  Transmission Date: 20210420
  Serious: Yes (Death)
  Sender: FDA-Public Use
  Company Number: US-ROCHE-1914195

PATIENT
  Sex: Male

DRUGS (7)
  1. RITUXAN [Suspect]
     Active Substance: RITUXIMAB
     Indication: DEMYELINATION
     Dosage: DAY 1 AND DAY 15 (CYCLE EVERY 6 MONTHS)
     Route: 042
     Dates: start: 20161114, end: 20210115
  2. RITUXAN [Suspect]
     Active Substance: RITUXIMAB
     Indication: MYELITIS TRANSVERSE
     Dosage: PATIENT RECEIVED 1000 MG ON 21/MAY/2018
     Route: 042
     Dates: start: 20161120
  3. TYLENOL [Concomitant]
     Active Substance: ACETAMINOPHEN
     Indication: PREMEDICATION
     Route: 048
  4. BENADRYL [Concomitant]
     Active Substance: DIPHENHYDRAMINE HYDROCHLORIDE
     Route: 048
  5. SOLU?MEDROL [Concomitant]
     Active Substance: METHYLPREDNISOLONE SODIUM SUCCINATE
  6. DULOXETINE. [Concomitant]
     Active Substance: DULOXETINE
  7. PRIVIGEN [Concomitant]
     Active Substance: HUMAN IMMUNOGLOBULIN G

REACTIONS (2)
  - Sepsis [Fatal]
  - Off label use [Unknown]
